FAERS Safety Report 8596355-7 (Version None)
Quarter: 2012Q3

REPORT INFORMATION
  Report Type: 
  Country: None (occurrence: None)
  Receive Date: 20120807
  Receipt Date: 20120807
  Transmission Date: 20120928
  Serious: Yes (Other)
  Sender: FDA-Public Use
  Company Number: None

PATIENT
  Sex: Female
  Weight: 90.7194 kg

DRUGS (2)
  1. ERGOCALCIFEROL [Suspect]
     Indication: VITAMIN D DEFICIENCY
     Dosage: 1 EA. WEEK
     Dates: start: 20120615
  2. ERGOCALCIFEROL [Suspect]
     Indication: VITAMIN D DEFICIENCY
     Dosage: 1 EA. WEEK
     Dates: start: 20120623

REACTIONS (4)
  - VISION BLURRED [None]
  - EYE PAIN [None]
  - CHEST DISCOMFORT [None]
  - EYE IRRITATION [None]
